FAERS Safety Report 10700519 (Version 1)
Quarter: 2015Q1

REPORT INFORMATION
  Report Type: Spontaneous
  Country: GB (occurrence: GB)
  Receive Date: 20150109
  Receipt Date: 20150109
  Transmission Date: 20150721
  Serious: Yes (Hospitalization, Other)
  Sender: FDA-Public Use
  Company Number: GB-BAYER-2015-000297

PATIENT
  Age: 36 Year
  Sex: Male
  Weight: 79.37 kg

DRUGS (1)
  1. CIPROFLOXACIN. [Suspect]
     Active Substance: CIPROFLOXACIN
     Indication: INFECTION
     Dosage: 25 MG, BID
     Route: 048
     Dates: start: 20141124, end: 20141201

REACTIONS (15)
  - Withdrawal syndrome [Unknown]
  - Panic attack [Not Recovered/Not Resolved]
  - Tinnitus [Not Recovered/Not Resolved]
  - Nervousness [Unknown]
  - Seizure [Recovered/Resolved with Sequelae]
  - Palpitations [Not Recovered/Not Resolved]
  - Hyperhidrosis [Unknown]
  - Syncope [Recovered/Resolved with Sequelae]
  - Arthralgia [Not Recovered/Not Resolved]
  - Atrial flutter [Recovered/Resolved with Sequelae]
  - Anxiety [Not Recovered/Not Resolved]
  - Dizziness [Unknown]
  - Paraesthesia [Unknown]
  - Headache [Unknown]
  - Tremor [Unknown]

NARRATIVE: CASE EVENT DATE: 201412
